FAERS Safety Report 17307674 (Version 1)
Quarter: 2020Q1

REPORT INFORMATION
  Report Type: Spontaneous
  Country: AF (occurrence: AF)
  Receive Date: 20200122
  Receipt Date: 20200122
  Transmission Date: 20200409
  Serious: Yes (Hospitalization)
  Sender: FDA-Public Use
  Company Number: None

PATIENT
  Sex: Female

DRUGS (2)
  1. HUMIRA [Suspect]
     Active Substance: ADALIMUMAB
     Indication: RHEUMATOID ARTHRITIS
     Dosage: ?          OTHER FREQUENCY:EVERY OTHER WEEK;?
     Route: 058
     Dates: start: 20190103
  2. ENOXAPARIN [Concomitant]
     Active Substance: ENOXAPARIN

REACTIONS (1)
  - Knee operation [None]
